FAERS Safety Report 11663945 (Version 4)
Quarter: 2015Q4

REPORT INFORMATION
  Report Type: Spontaneous
  Country: US (occurrence: US)
  Receive Date: 20151027
  Receipt Date: 20151231
  Transmission Date: 20160304
  Serious: Yes (Other)
  Sender: FDA-Public Use
  Company Number: PHEH2015US021610

PATIENT
  Age: 28 Year
  Sex: Male
  Weight: 81.6 kg

DRUGS (2)
  1. VITAMIN D3 [Suspect]
     Active Substance: CHOLECALCIFEROL
     Indication: PRODUCT USED FOR UNKNOWN INDICATION
     Dosage: 2000 U, QD (AT BEDTIME, HS)
     Route: 048
     Dates: start: 201503
  2. GILENYA [Suspect]
     Active Substance: FINGOLIMOD HYDROCHLORIDE
     Indication: MULTIPLE SCLEROSIS
     Dosage: 0.5 MG, QD (AT BEDTIME, HS)
     Route: 048
     Dates: start: 201506, end: 20151022

REACTIONS (2)
  - Visual acuity reduced [Recovering/Resolving]
  - Macular oedema [Recovering/Resolving]

NARRATIVE: CASE EVENT DATE: 20151023
